FAERS Safety Report 4308147-5 (Version None)
Quarter: 2004Q1

REPORT INFORMATION
  Report Type: 
  Country: None (occurrence: None)
  Receive Date: 20040301
  Receipt Date: 20030617
  Transmission Date: 20041129
  Serious: No
  Sender: FDA-Public Use
  Company Number: US-BRISTOL-MYERS SQUIBB COMPANY-12302659

PATIENT
  Age: 66 Year
  Sex: Male
  Weight: 77 kg

DRUGS (7)
  1. GLUCOPHAGE [Suspect]
     Indication: DIABETES MELLITUS
     Route: 048
     Dates: start: 20030602
  2. CARDIZEM [Concomitant]
  3. TOPROL-XL [Concomitant]
  4. LOZOL [Concomitant]
  5. LIPITOR [Concomitant]
  6. VITAMIN E [Concomitant]
  7. ASPIRIN [Concomitant]

REACTIONS (1)
  - CONSTIPATION [None]
